FAERS Safety Report 5826274-8 (Version None)
Quarter: 2008Q3

REPORT INFORMATION
  Report Type: 
  Country: None (occurrence: None)
  Receive Date: 20080723
  Receipt Date: 20080715
  Transmission Date: 20090109
  Serious: Yes (Hospitalization)
  Sender: FDA-Public Use
  Company Number: 200509AGG00307

PATIENT
  Age: 55 Year
  Sex: Male

DRUGS (6)
  1. TIROFIBAN HYDROCHLORIDE (TIROFIBAN HCL) [Suspect]
     Indication: ACUTE CORONARY SYNDROME
  2. ASPIRIN /00002701/ (TO UNKNOWN) [Concomitant]
  3. ATORVASTATIN CALCIUM (TO UNKNOWN) [Concomitant]
  4. INSULIN (TO UNKNOWN) [Concomitant]
  5. NADROPARIN CALCIUM (TO UNKNOWN) [Concomitant]
  6. RABEPRAZOLE SODIUM (TO UNKNOWN) [Concomitant]

REACTIONS (6)
  - CHILLS [None]
  - ERYTHEMA [None]
  - HAEMOLYSIS [None]
  - LIVER FUNCTION TEST ABNORMAL [None]
  - PYREXIA [None]
  - THROMBOCYTOPENIA [None]
